FAERS Safety Report 5500128-9 (Version None)
Quarter: 2007Q4

REPORT INFORMATION
  Report Type: 
  Country: None (occurrence: None)
  Receive Date: 20071025
  Receipt Date: 20071012
  Transmission Date: 20080405
  Serious: Yes (Disabling)
  Sender: FDA-Public Use
  Company Number: 8026601

PATIENT
  Age: 7 Year
  Sex: Female
  Weight: 26.9 kg

DRUGS (3)
  1. KEPPRA [Suspect]
     Indication: PARTIAL SEIZURES
     Dosage: 700 MG 2/D PO
     Route: 048
     Dates: start: 20061214, end: 20070101
  2. KEPPRA [Suspect]
     Indication: PARTIAL SEIZURES
     Dosage: 600 MG 2/D PO
     Route: 048
     Dates: start: 20070101
  3. VALPROATE SODIUM [Concomitant]

REACTIONS (9)
  - AFFECT LABILITY [None]
  - AGGRESSION [None]
  - AGITATION [None]
  - ANXIETY [None]
  - EYE DISORDER [None]
  - MUSCLE TWITCHING [None]
  - SOMNOLENCE [None]
  - TEARFULNESS [None]
  - TIC [None]
